FAERS Safety Report 25844465 (Version 1)
Quarter: 2025Q3

REPORT INFORMATION
  Report Type: Spontaneous
  Country: EU (occurrence: EU)
  Receive Date: 20250925
  Receipt Date: 20250925
  Transmission Date: 20251021
  Serious: Yes (Other)
  Sender: BRISTOL-MYERS SQUIBB COMPANY
  Company Number: EU-BRISTOL-MYERS SQUIBB COMPANY-2025-131177

PATIENT
  Age: 87 Year
  Sex: Female

DRUGS (3)
  1. NIVOLUMAB [Suspect]
     Active Substance: NIVOLUMAB
     Indication: Colorectal cancer metastatic
  2. NIVOLUMAB [Suspect]
     Active Substance: NIVOLUMAB
     Dates: start: 202504, end: 202507
  3. NELVUTAMIG [Suspect]
     Active Substance: NELVUTAMIG
     Indication: Colorectal cancer metastatic
     Dates: start: 20250301, end: 202507

REACTIONS (1)
  - Adrenomegaly [Not Recovered/Not Resolved]

NARRATIVE: CASE EVENT DATE: 20250415
